FAERS Safety Report 7246206-8 (Version None)
Quarter: 2011Q1

REPORT INFORMATION
  Report Type: 
  Country: None (occurrence: None)
  Receive Date: 20110126
  Receipt Date: 20110119
  Transmission Date: 20110831
  Serious: Yes (Other)
  Sender: FDA-Public Use
  Company Number: B0695486A

PATIENT
  Age: 10 Year
  Sex: Male

DRUGS (4)
  1. RELENZA [Suspect]
     Indication: INFLUENZA
     Route: 055
     Dates: start: 20110107, end: 20110108
  2. HUSTAZOL [Concomitant]
     Route: 048
     Dates: start: 20110107, end: 20110111
  3. TRANEXAMIC ACID [Concomitant]
     Route: 048
     Dates: start: 20110107, end: 20110111
  4. MUCOTRON [Concomitant]
     Route: 048
     Dates: start: 20110107, end: 20110111

REACTIONS (2)
  - DEPRESSED LEVEL OF CONSCIOUSNESS [None]
  - ABNORMAL BEHAVIOUR [None]
